FAERS Safety Report 8025601-3 (Version None)
Quarter: 2012Q1

REPORT INFORMATION
  Report Type: 
  Country: None (occurrence: None)
  Receive Date: 20120105
  Receipt Date: 20120105
  Transmission Date: 20120608
  Serious: Yes (Other)
  Sender: FDA-Public Use
  Company Number: PT-BAYER-2011-124581

PATIENT
  Age: 70 Year
  Sex: Male

DRUGS (14)
  1. NORVASC [Concomitant]
  2. TRENTAL [Concomitant]
  3. ATORVASTATIN CALCIUM [Concomitant]
  4. DIOVAN HCT [Concomitant]
  5. TIMOPTOL [Concomitant]
  6. ULTRAVIST 150 [Suspect]
     Dates: start: 20090603, end: 20090603
  7. OMEPRAZOLE [Concomitant]
  8. XALATAN [Concomitant]
  9. NAPROSYN [Concomitant]
  10. LORENIN [Concomitant]
  11. IDEBENONE [Concomitant]
  12. TECNOSAL [Concomitant]
  13. METFORMIN HCL [Concomitant]
  14. ALPRAZOLAM [Concomitant]

REACTIONS (2)
  - BLISTER [None]
  - DERMATITIS BULLOUS [None]
